FAERS Safety Report 9782706 (Version 1)
Quarter: 2013Q4

REPORT INFORMATION
  Report Type: Report from Study
  Country: NL (occurrence: NL)
  Receive Date: 20131226
  Receipt Date: 20131226
  Transmission Date: 20140711
  Serious: Yes (Death)
  Sender: FDA-Public Use
  Company Number: PHHY2013NL151770

PATIENT
  Sex: Female

DRUGS (4)
  1. SANDOSTATIN LAR [Suspect]
     Indication: NEUROENDOCRINE TUMOUR
     Dosage: 30 MG/ 2 ML, 1 PER 4 WEEKS
     Route: 042
  2. SANDOSTATIN LAR [Suspect]
     Dosage: 30 MG/ 2 ML, 1 PER 4 WEEKS
     Route: 042
     Dates: start: 20131010
  3. SANDOSTATIN LAR [Suspect]
     Dosage: 30 MG/ 2 ML, 1 PER 4 WEEKS
     Route: 042
     Dates: start: 20131108
  4. SANDOSTATIN LAR [Suspect]
     Dosage: 30 MG/ 2 ML, 1 PER 4 WEEKS
     Route: 042
     Dates: start: 20131205

REACTIONS (1)
  - Death [Fatal]
